FAERS Safety Report 22239458 (Version 1)
Quarter: 2023Q2

REPORT INFORMATION
  Report Type: Spontaneous
  Country: US (occurrence: None)
  Receive Date: 20230419
  Receipt Date: 20230419
  Transmission Date: 20230722
  Serious: Yes (Hospitalization, Disabling)
  Sender: FDA-Public Use
  Company Number: None

PATIENT
  Age: 53 Year
  Sex: Female

DRUGS (12)
  1. MYCOPHENOLIC ACID [Suspect]
     Active Substance: MYCOPHENOLIC ACID
     Indication: Prophylaxis against transplant rejection
     Dosage: FREQUENCY : TWICE A DAY;?
     Route: 048
     Dates: start: 20220211
  2. TACROLIMUS [Suspect]
     Active Substance: TACROLIMUS
     Indication: Prophylaxis against transplant rejection
     Dosage: FREQUENCY : AS DIRECTED; (TACROLIMUS: DIRECTIONS: TAKE 2 CS PO WITH 0.5MG CAPSULE QAM AND 3 CS PO QP
     Route: 048
     Dates: start: 20220211
  3. GLIPIZIDE [Concomitant]
     Active Substance: GLIPIZIDE
  4. VITAMINS [Concomitant]
     Active Substance: VITAMINS
  5. OYSTER SHELL CALCIUM WITH VITAMIN D [Concomitant]
     Active Substance: CALCIUM\CHOLECALCIFEROL
  6. CARVEDILOL [Concomitant]
     Active Substance: CARVEDILOL
  7. DAPSONE [Concomitant]
     Active Substance: DAPSONE
  8. PREDNISONE [Concomitant]
     Active Substance: PREDNISONE
  9. VALGANCICLOVIR HYDROCHLORIDE [Concomitant]
     Active Substance: VALGANCICLOVIR HYDROCHLORIDE
  10. ONDANSETRON [Concomitant]
     Active Substance: ONDANSETRON
  11. MAGNESIUM OXIDE [Concomitant]
     Active Substance: MAGNESIUM OXIDE
  12. ALENDRONATE [Concomitant]
     Active Substance: ALENDRONATE SODIUM

REACTIONS (1)
  - Bronchitis [None]

NARRATIVE: CASE EVENT DATE: 20230415
